FAERS Safety Report 5866029-1 (Version None)
Quarter: 2008Q3

REPORT INFORMATION
  Report Type: 
  Country: None (occurrence: None)
  Receive Date: 20080829
  Receipt Date: 20080819
  Transmission Date: 20090109
  Serious: Yes (Other)
  Sender: FDA-Public Use
  Company Number: CA-PFIZER INC-2008062617

PATIENT
  Sex: Female

DRUGS (2)
  1. LYRICA [Suspect]
     Indication: PAIN
     Route: 048
  2. LYRICA [Suspect]
     Indication: NEUROPATHY PERIPHERAL

REACTIONS (3)
  - BIPOLAR DISORDER [None]
  - DEPRESSION [None]
  - PAIN [None]
